FAERS Safety Report 11274251 (Version 2)
Quarter: 2015Q4

REPORT INFORMATION
  Report Type: Report from Study
  Country: BR (occurrence: BR)
  Receive Date: 20150715
  Receipt Date: 20151007
  Transmission Date: 20160304
  Serious: Yes (Life-Threatening, Hospitalization, Other)
  Sender: FDA-Public Use
  Company Number: BR-BRISTOL-MYERS SQUIBB COMPANY-17079922

PATIENT
  Age: 39 Year
  Sex: Male
  Weight: 75 kg

DRUGS (13)
  1. BECLOMETHASONE                     /00212602/ [Concomitant]
     Indication: RHINITIS
     Dosage: UNK
     Route: 065
     Dates: start: 20121022, end: 20130308
  2. ISONIAZID. [Concomitant]
     Active Substance: ISONIAZID
     Indication: TUBERCULOSIS
     Dosage: UNK-08MAR13
     Route: 048
     Dates: start: 20121010, end: 20121022
  3. RIFAMPIN. [Concomitant]
     Active Substance: RIFAMPIN
     Indication: TUBERCULOSIS
     Dosage: UNK-08MAR13
     Route: 048
     Dates: start: 20121010, end: 20121022
  4. VITAMIN B COMPLEX [Concomitant]
     Active Substance: CYANOCOBALAMIN\DEXPANTHENOL\NIACINAMIDE\PYRIDOXINE HYDROCHLORIDE\RIBOFLAVIN 5^-PHOSPHATE SODIUM\THIAMINE HYDROCHLORIDE\VITAMIN B COMPLEX
     Indication: PRODUCT USED FOR UNKNOWN INDICATION
     Dosage: UNK
     Route: 065
     Dates: start: 201010, end: 20121022
  5. IMIPRAMINE HCL [Concomitant]
     Active Substance: IMIPRAMINE HYDROCHLORIDE
     Indication: ANXIETY
     Dosage: UNK, BID
     Route: 048
     Dates: start: 201010, end: 20130308
  6. COMBIVIR [Concomitant]
     Active Substance: LAMIVUDINE\ZIDOVUDINE
     Indication: HIV INFECTION
     Dosage: 1DF:150-300MG,Q12H,08MAR13
     Route: 048
     Dates: start: 20100125
  7. PYRAZINAMIDE. [Concomitant]
     Active Substance: PYRAZINAMIDE
     Indication: TUBERCULOSIS
     Dosage: UNK UNK, QD
     Route: 048
     Dates: start: 20121010, end: 20121022
  8. ETHAMBUTOL HCL [Concomitant]
     Active Substance: ETHAMBUTOL HYDROCHLORIDE
     Indication: TUBERCULOSIS
     Dosage: UNK UNK, QD
     Route: 048
     Dates: start: 20121010, end: 20121022
  9. HALOPERIDOL. [Concomitant]
     Active Substance: HALOPERIDOL
     Indication: ANXIETY
     Dosage: UNK, BID
     Route: 048
     Dates: start: 201010, end: 20130308
  10. DIAZEPAM. [Concomitant]
     Active Substance: DIAZEPAM
     Indication: ANXIETY
     Dosage: UNK, BID
     Route: 048
     Dates: start: 2010, end: 20130308
  11. PYRIDOXINE [Concomitant]
     Active Substance: PYRIDOXINE
     Indication: TUBERCULOSIS
     Dosage: UNK, BID
     Route: 048
     Dates: start: 201212, end: 20130308
  12. EFAVIRENZ [Suspect]
     Active Substance: EFAVIRENZ
     Indication: HIV INFECTION
     Dosage: INTRPD 22OCT12,08MAR13
     Route: 048
     Dates: start: 20100125
  13. PROMETHAZINE [Concomitant]
     Active Substance: PROMETHAZINE\PROMETHAZINE HYDROCHLORIDE
     Indication: ANXIETY
     Dosage: UNK, BID
     Route: 048
     Dates: start: 201010, end: 20130308

REACTIONS (4)
  - Hepatotoxicity [Recovered/Resolved]
  - Weight decreased [Recovered/Resolved]
  - Anxiety [Unknown]
  - Pulmonary tuberculosis [Recovered/Resolved]

NARRATIVE: CASE EVENT DATE: 20120908
